FAERS Safety Report 20864413 (Version 2)
Quarter: 2022Q2

REPORT INFORMATION
  Report Type: Spontaneous
  Country: GB (occurrence: GB)
  Receive Date: 20220523
  Receipt Date: 20220617
  Transmission Date: 20220720
  Serious: Yes (Other)
  Sender: FDA-Public Use
  Company Number: GB-JNJFOC-20220518878

PATIENT
  Age: 66 Year
  Sex: Male

DRUGS (2)
  1. ABIRATERONE [Suspect]
     Active Substance: ABIRATERONE
     Indication: Prostate cancer
     Route: 048
     Dates: start: 20220119
  2. PREDNISOLONE [Concomitant]
     Active Substance: PREDNISOLONE
     Indication: Product used for unknown indication
     Route: 048
     Dates: start: 20220119

REACTIONS (2)
  - Blood alkaline phosphatase increased [Recovered/Resolved]
  - Blood potassium decreased [Unknown]

NARRATIVE: CASE EVENT DATE: 20220505
